FAERS Safety Report 9380858 (Version 1)
Quarter: 2013Q3

REPORT INFORMATION
  Report Type: Spontaneous
  Country: RU (occurrence: RU)
  Receive Date: 20130703
  Receipt Date: 20130703
  Transmission Date: 20140515
  Serious: Yes (Other)
  Sender: FDA-Public Use
  Company Number: RU-JNJFOC-20130700260

PATIENT
  Age: 29 Year
  Sex: Female

DRUGS (10)
  1. CETIRIZINE HYDROCHLORIDE [Suspect]
     Indication: CHRONIC SPONTANEOUS URTICARIA
     Route: 065
  2. CETIRIZINE HYDROCHLORIDE [Suspect]
     Indication: CHRONIC SPONTANEOUS URTICARIA
     Route: 065
  3. CETIRIZINE HYDROCHLORIDE [Suspect]
     Indication: CHRONIC SPONTANEOUS URTICARIA
     Route: 065
  4. CETIRIZINE HYDROCHLORIDE [Suspect]
     Indication: CHRONIC SPONTANEOUS URTICARIA
     Route: 065
  5. CETIRIZINE HYDROCHLORIDE [Suspect]
     Indication: CHRONIC SPONTANEOUS URTICARIA
     Route: 065
  6. CETIRIZINE HYDROCHLORIDE [Suspect]
     Indication: CHRONIC SPONTANEOUS URTICARIA
     Route: 065
  7. CETIRIZINE HYDROCHLORIDE [Suspect]
     Indication: CHRONIC SPONTANEOUS URTICARIA
     Route: 065
  8. CETIRIZINE HYDROCHLORIDE [Suspect]
     Indication: CHRONIC SPONTANEOUS URTICARIA
     Route: 065
  9. CETIRIZINE HYDROCHLORIDE [Suspect]
     Indication: CHRONIC SPONTANEOUS URTICARIA
     Route: 065
  10. RANITIDINE [Concomitant]

REACTIONS (8)
  - Eyelid oedema [Recovering/Resolving]
  - Blister [Recovering/Resolving]
  - Lip oedema [Recovering/Resolving]
  - Fear [Unknown]
  - Overdose [Unknown]
  - Tension [Unknown]
  - Emotional distress [None]
  - Therapeutic response decreased [None]
